FAERS Safety Report 25716071 (Version 1)
Quarter: 2025Q3

REPORT INFORMATION
  Report Type: Spontaneous
  Country: GB (occurrence: GB)
  Receive Date: 20250822
  Receipt Date: 20250822
  Transmission Date: 20251021
  Serious: Yes (Other)
  Sender: RANBAXY
  Company Number: GB-SUN PHARMACEUTICAL INDUSTRIES LTD-2025RR-524144

PATIENT
  Age: 62 Year
  Sex: Male
  Weight: 96 kg

DRUGS (7)
  1. SUMATRIPTAN [Suspect]
     Active Substance: SUMATRIPTAN
     Indication: Migraine
     Route: 065
     Dates: end: 20250415
  2. PREGABALIN [Concomitant]
     Active Substance: PREGABALIN
     Indication: Migraine
     Route: 065
     Dates: start: 20230626
  3. TOPIRAMATE [Concomitant]
     Active Substance: TOPIRAMATE
     Indication: Migraine
     Route: 065
     Dates: start: 20240924
  4. LORATADINE [Concomitant]
     Active Substance: LORATADINE
     Indication: Seasonal allergy
     Route: 065
     Dates: start: 20250407
  5. SERTRALINE [Concomitant]
     Active Substance: SERTRALINE HYDROCHLORIDE
     Indication: Depressed mood
     Route: 065
     Dates: start: 20240325
  6. COLONIS PHARMA CHOLECALCIFEROL [Concomitant]
     Indication: Vitamin D deficiency
     Route: 065
     Dates: start: 20231205
  7. OMEPRAZOLE [Concomitant]
     Active Substance: OMEPRAZOLE
     Indication: Gastrooesophageal reflux disease
     Route: 065
     Dates: start: 20240108

REACTIONS (1)
  - Confusional state [Recovered/Resolved]

NARRATIVE: CASE EVENT DATE: 20250415
